FAERS Safety Report 8915909 (Version 1)
Quarter: 2012Q4

REPORT INFORMATION
  Report Type: 
  Country: SE (occurrence: SE)
  Receive Date: 20121119
  Receipt Date: 20121119
  Transmission Date: 20130627
  Serious: Yes (Hospitalization)
  Sender: FDA-Public Use
  Company Number: SE-PFIZER INC-2012284483

PATIENT
  Age: 69 Year
  Sex: Male
  Weight: 87 kg

DRUGS (11)
  1. GENOTROPIN [Suspect]
     Dosage: 0.3 mg, 1x/day, 7 injections/week
     Route: 058
     Dates: start: 20040510
  2. CORTISONE ACETATE [Concomitant]
     Indication: ACTH DECREASED
     Dosage: UNK
     Dates: start: 19730501
  3. LEVOTHYROXINE [Concomitant]
     Indication: PRIMARY HYPOTHYROIDISM
     Dosage: UNK
     Dates: start: 19730501
  4. LEVOTHYROXINE [Concomitant]
     Indication: THYROID DISORDER
  5. DESMOPRESSIN [Concomitant]
     Indication: ADH DECREASED
     Dosage: UNK
     Dates: start: 19730501
  6. TESTOSTERONE [Concomitant]
     Indication: LUTEINIZING HORMONE DEFICIENCY
     Dosage: UNK
     Dates: start: 19730601
  7. TESTOSTERONE [Concomitant]
     Indication: FOLLICLE-STIMULATING HORMONE DEFICIENCY
  8. TESTOSTERONE [Concomitant]
     Indication: TESTICULAR HYPOGONADISM
  9. ATMOS [Concomitant]
     Indication: LUTEINISING HORMONE DEFICIENCY
     Dosage: UNK
     Dates: start: 19971016
  10. ATMOS [Concomitant]
     Indication: FOLLICLE-STIMULATING HORMONE DEFICIENCY
  11. ATMOS [Concomitant]
     Indication: TESTICULAR HYPOGONADISM

REACTIONS (1)
  - Infection [Unknown]
